FAERS Safety Report 7382249-1 (Version None)
Quarter: 2011Q1

REPORT INFORMATION
  Report Type: 
  Country: None (occurrence: None)
  Receive Date: 20110329
  Receipt Date: 20110121
  Transmission Date: 20110831
  Serious: No
  Sender: FDA-Public Use
  Company Number: US-BAYER-2011-007973

PATIENT
  Sex: Female
  Weight: 50 kg

DRUGS (3)
  1. ALEVE (CAPLET) [Suspect]
     Indication: POSTOPERATIVE ANALGESIA
     Dosage: 2 DF, BID, TOOK 2 IN THE MORNING AND 2 IN THE EVENING, BOTTLE COUNT 130CT
     Route: 048
  2. VICODIN [Concomitant]
  3. THYROID TAB [Concomitant]

REACTIONS (1)
  - NO ADVERSE EVENT [None]
